FAERS Safety Report 14624442 (Version 1)
Quarter: 2018Q1

REPORT INFORMATION
  Report Type: Report from Study
  Country: GB (occurrence: IT)
  Receive Date: 20180312
  Receipt Date: 20180312
  Transmission Date: 20180509
  Serious: Yes (Hospitalization)
  Sender: FDA-Public Use
  Company Number: GB-BAYER-2018-039959

PATIENT
  Age: 58 Year
  Sex: Male

DRUGS (8)
  1. PLAQUENIL [Concomitant]
     Active Substance: HYDROXYCHLOROQUINE SULFATE
  2. CARDIOASPIRIN [Suspect]
     Active Substance: ASPIRIN
     Dosage: UNK
  3. TORVAST [Concomitant]
     Active Substance: ATORVASTATIN
  4. BRILIQUE [Suspect]
     Active Substance: TICAGRELOR
  5. METFORMIN HYDROCHLORIDE. [Concomitant]
     Active Substance: METFORMIN HYDROCHLORIDE
  6. PANTORC [Concomitant]
     Active Substance: PANTOPRAZOLE SODIUM
  7. TRIATEC [Concomitant]
     Active Substance: RAMIPRIL
  8. RANEXA [Concomitant]
     Active Substance: RANOLAZINE

REACTIONS (4)
  - Diarrhoea haemorrhagic [Unknown]
  - Drug interaction [Unknown]
  - Abdominal pain [Unknown]
  - Mucous stools [Unknown]

NARRATIVE: CASE EVENT DATE: 20180104
